FAERS Safety Report 12954948 (Version 2)
Quarter: 2016Q4

REPORT INFORMATION
  Report Type: Spontaneous
  Country: US (occurrence: US)
  Receive Date: 20161118
  Receipt Date: 20161208
  Transmission Date: 20170207
  Serious: Yes (Other)
  Sender: FDA-Public Use
  Company Number: US-SA-2016SA207130

PATIENT
  Age: 78 Year
  Sex: Female
  Weight: 66.2 kg

DRUGS (3)
  1. SOLOSTAR [Concomitant]
     Active Substance: DEVICE
  2. METFORMIN [Concomitant]
     Active Substance: METFORMIN HYDROCHLORIDE
  3. LANTUS SOLOSTAR [Suspect]
     Active Substance: INSULIN GLARGINE
     Indication: TYPE 2 DIABETES MELLITUS
     Dosage: 10-14 UNITS 2 TIMES A DAY
     Route: 065

REACTIONS (4)
  - Arthropathy [Unknown]
  - Product use issue [Unknown]
  - Drug dose omission [Unknown]
  - Eye disorder [Unknown]
